FAERS Safety Report 17807947 (Version 1)
Quarter: 2020Q2

REPORT INFORMATION
  Report Type: Report from Study
  Country: None (occurrence: US)
  Receive Date: 20200520
  Receipt Date: 20200520
  Transmission Date: 20200714
  Serious: Yes (Hospitalization, Other)
  Sender: FDA-Public Use
  Company Number: US-ABBVIE-20K-163-3398630-00

PATIENT
  Age: 60 Year
  Sex: Female

DRUGS (4)
  1. FOLIC ACID. [Concomitant]
     Active Substance: FOLIC ACID
     Indication: PRODUCT USED FOR UNKNOWN INDICATION
  2. VITAMIN C [Concomitant]
     Active Substance: ASCORBIC ACID
     Indication: PRODUCT USED FOR UNKNOWN INDICATION
  3. PROBIOTIC [Concomitant]
     Active Substance: PROBIOTICS NOS
     Indication: PRODUCT USED FOR UNKNOWN INDICATION
  4. RINVOQ [Suspect]
     Active Substance: UPADACITINIB
     Indication: RHEUMATOID ARTHRITIS
     Route: 048
     Dates: start: 20200103, end: 20200424

REACTIONS (21)
  - Mouth ulceration [Recovered/Resolved]
  - Cerebrovascular accident [Recovered/Resolved]
  - Muscle spasms [Not Recovered/Not Resolved]
  - Back disorder [Not Recovered/Not Resolved]
  - Unevaluable event [Not Recovered/Not Resolved]
  - Product storage error [Unknown]
  - Product physical issue [Unknown]
  - Nasal ulcer [Recovered/Resolved]
  - Fungal infection [Not Recovered/Not Resolved]
  - Pyrexia [Recovered/Resolved]
  - Large intestine perforation [Recovered/Resolved]
  - Ulcer [Recovered/Resolved]
  - Near death experience [Recovered/Resolved]
  - Intestinal sepsis [Recovered/Resolved]
  - Gastrointestinal disorder [Not Recovered/Not Resolved]
  - COVID-19 [Recovered/Resolved]
  - Inflammatory marker increased [Unknown]
  - Pneumonia [Unknown]
  - Rash papular [Unknown]
  - Oesophageal pain [Recovered/Resolved]
  - Pain [Not Recovered/Not Resolved]

NARRATIVE: CASE EVENT DATE: 2020
